FAERS Safety Report 5850338-6 (Version None)
Quarter: 2008Q3

REPORT INFORMATION
  Report Type: 
  Country: None (occurrence: None)
  Receive Date: 20080819
  Receipt Date: 20080814
  Transmission Date: 20090109
  Serious: Yes (Hospitalization)
  Sender: FDA-Public Use
  Company Number: JP-MERCK-0806USA08268

PATIENT
  Age: 69 Year
  Sex: Male
  Weight: 55 kg

DRUGS (7)
  1. FOSAMAX [Suspect]
     Indication: HYPERCALCAEMIA
     Route: 048
     Dates: start: 20080529, end: 20080622
  2. BLOPRESS [Concomitant]
     Indication: HYPERTENSION
     Route: 048
  3. ZYLORIC [Concomitant]
     Indication: HYPERURICAEMIA
     Route: 048
  4. [THERAPY UNSPECIFIED] [Concomitant]
     Indication: RENAL IMPAIRMENT
     Route: 048
  5. LENDORMIN [Concomitant]
     Indication: INSOMNIA
     Route: 048
  6. DEPAS [Concomitant]
     Indication: INSOMNIA
     Route: 048
  7. PURSENNID [Concomitant]
     Indication: CONSTIPATION
     Route: 048

REACTIONS (3)
  - HEPATIC FUNCTION ABNORMAL [None]
  - INAPPROPRIATE ANTIDIURETIC HORMONE SECRETION [None]
  - JAUNDICE [None]
